FAERS Safety Report 4465087-9 (Version None)
Quarter: 2004Q4

REPORT INFORMATION
  Report Type: 
  Country: None (occurrence: None)
  Receive Date: 20041004
  Receipt Date: 20040924
  Transmission Date: 20050328
  Serious: Yes (Hospitalization)
  Sender: FDA-Public Use
  Company Number: GB-BRISTOL-MYERS SQUIBB COMPANY-12717161

PATIENT
  Age: 70 Year
  Sex: Female
  Weight: 55 kg

DRUGS (10)
  1. CYCLOPHOSPHAMIDE [Suspect]
     Indication: BREAST CANCER METASTATIC
     Route: 042
     Dates: start: 20040813, end: 20040813
  2. METHOTREXATE [Suspect]
     Indication: BREAST CANCER METASTATIC
     Route: 042
     Dates: start: 20040813, end: 20040813
  3. FLUOROURACIL [Suspect]
     Indication: BREAST CANCER METASTATIC
     Route: 042
     Dates: start: 20040813, end: 20040813
  4. DEXAMETHASONE [Suspect]
     Indication: BREAST CANCER METASTATIC
     Dosage: THERAPY START DATE UNKNOWN.
     Route: 048
     Dates: start: 20040825, end: 20040825
  5. AMLODIPINE [Concomitant]
  6. LANSOPRAZOLE [Concomitant]
     Dates: start: 20040825
  7. FRUSEMIDE [Concomitant]
  8. CYCLIZINE [Concomitant]
  9. MORPHINE [Concomitant]
  10. WARFARIN SODIUM [Concomitant]
     Indication: PULMONARY EMBOLISM
     Dates: start: 20040601

REACTIONS (3)
  - DYSPNOEA [None]
  - FAECES DISCOLOURED [None]
  - PANCYTOPENIA [None]
